FAERS Safety Report 4344320-8 (Version None)
Quarter: 2004Q2

REPORT INFORMATION
  Report Type: 
  Country: None (occurrence: None)
  Receive Date: 20040422
  Receipt Date: 20040413
  Transmission Date: 20050107
  Serious: Yes (Death)
  Sender: FDA-Public Use
  Company Number: JP-BRISTOL-MYERS SQUIBB COMPANY-12565271

PATIENT
  Age: 46 Year
  Sex: Male

DRUGS (3)
  1. CYCLOPHOSPHAMIDE [Suspect]
     Indication: RHABDOMYOSARCOMA
  2. ONCOVIN [Concomitant]
     Indication: RHABDOMYOSARCOMA
  3. COSMEGEN [Concomitant]
     Indication: RHABDOMYOSARCOMA

REACTIONS (7)
  - DRUG INEFFECTIVE [None]
  - METASTASES TO HEART [None]
  - MYOCARDIAL INFARCTION [None]
  - OEDEMA PERIPHERAL [None]
  - RHABDOMYOSARCOMA [None]
  - SYNCOPE [None]
  - VENTRICULAR FIBRILLATION [None]
